FAERS Safety Report 9578317 (Version 1)
Quarter: 2013Q4

REPORT INFORMATION
  Report Type: Spontaneous
  Country: US (occurrence: US)
  Receive Date: 20131001
  Receipt Date: 20131001
  Transmission Date: 20140711
  Serious: No
  Sender: FDA-Public Use
  Company Number: US-AMGEN-USASP2013012801

PATIENT
  Sex: Female
  Weight: 53.06 kg

DRUGS (12)
  1. ENBREL [Suspect]
     Indication: RHEUMATOID ARTHRITIS
     Dosage: 50 MG, QWK
  2. PANTOPRAZOLE [Concomitant]
     Dosage: 20 MG, UNK
  3. ACTONEL [Concomitant]
     Dosage: 150 MG, UNK
  4. DIAMOX                             /00016901/ [Concomitant]
     Dosage: 500 MG, UNK CR
  5. METHOTREXATE [Concomitant]
     Dosage: 2.5 MG, UNK
  6. PREDNISONE [Concomitant]
     Dosage: 1 MG, UNK
  7. FOLIC ACID [Concomitant]
     Dosage: UNK
  8. CALCIUM                            /00060701/ [Concomitant]
     Dosage: 500 UNK, UNK
  9. NAPROXEN [Concomitant]
     Dosage: 375 MG, UNK
  10. FISH OIL [Concomitant]
     Dosage: UNK
  11. VITAMIN B 12 [Concomitant]
     Dosage: 1000 MUG, UNK
     Route: 058
  12. VITAMIN D3 [Concomitant]
     Dosage: 10000 UNIT, UNK

REACTIONS (2)
  - Injection site bruising [Unknown]
  - Abdominal discomfort [Unknown]
